FAERS Safety Report 10206335 (Version 1)
Quarter: 2014Q2

REPORT INFORMATION
  Report Type: Spontaneous
  Country: JP (occurrence: JP)
  Receive Date: 20140530
  Receipt Date: 20140530
  Transmission Date: 20141212
  Serious: Yes (Other)
  Sender: FDA-Public Use
  Company Number: PHHY2014JP064009

PATIENT
  Age: 66 Year
  Sex: Female

DRUGS (3)
  1. NILOTINIB [Suspect]
     Indication: CHRONIC MYELOID LEUKAEMIA
     Dosage: 150 MG, UNK
     Route: 048
  2. NILOTINIB [Suspect]
     Dosage: 300 MG, DAILY
     Route: 048
  3. NILOTINIB [Suspect]
     Dosage: 200 MG, DAILY
     Route: 048

REACTIONS (1)
  - Electrocardiogram QT prolonged [Recovered/Resolved]
